FAERS Safety Report 8921545 (Version 1)
Quarter: 2012Q4

REPORT INFORMATION
  Report Type: 
  Country: US (occurrence: US)
  Receive Date: 20121122
  Receipt Date: 20121122
  Transmission Date: 20130627
  Serious: No
  Sender: FDA-Public Use
  Company Number: US-BIOGENIDEC-2012BI052799

PATIENT
  Sex: Male

DRUGS (1)
  1. TYSABRI [Suspect]
     Indication: MULTIPLE SCLEROSIS
     Route: 042
     Dates: start: 20120821

REACTIONS (8)
  - Abdominal pain [Recovered/Resolved]
  - Rhinalgia [Recovered/Resolved]
  - Blepharospasm [Recovered/Resolved]
  - Gait disturbance [Recovered/Resolved]
  - Tinnitus [Recovered/Resolved]
  - General symptom [Unknown]
  - Visual impairment [Recovered/Resolved]
  - Peroneal nerve palsy [Recovered/Resolved]
